FAERS Safety Report 15366455 (Version 1)
Quarter: 2018Q3

REPORT INFORMATION
  Report Type: Spontaneous
  Country: US (occurrence: US)
  Receive Date: 20180831
  Receipt Date: 20180831
  Transmission Date: 20181010
  Serious: No
  Sender: FDA-Public Use
  Company Number: None

PATIENT
  Age: 60 Year
  Sex: Female
  Weight: 76.2 kg

DRUGS (3)
  1. METHYL B12 [Concomitant]
  2. HALDOL [Suspect]
     Active Substance: HALOPERIDOL
     Indication: NERVOUS SYSTEM DISORDER
     Dosage: ?          QUANTITY:1 INJECTION;OTHER ROUTE:INJECTION?
  3. + BRAIN [Concomitant]

REACTIONS (2)
  - Suicidal ideation [None]
  - Stress [None]
